FAERS Safety Report 23760513 (Version 1)
Quarter: 2024Q2

REPORT INFORMATION
  Report Type: Spontaneous
  Country: CN (occurrence: CN)
  Receive Date: 20240419
  Receipt Date: 20240419
  Transmission Date: 20240715
  Serious: Yes (Hospitalization)
  Sender: FDA-Public Use
  Company Number: CN-ABBVIE-5724638

PATIENT
  Age: 65 Year
  Sex: Male

DRUGS (2)
  1. VENCLEXTA [Suspect]
     Active Substance: VENETOCLAX
     Indication: Neoplasm malignant
     Dosage: 0.3 GRAM
     Route: 048
     Dates: start: 20240309, end: 20240323
  2. AZACITIDINE [Suspect]
     Active Substance: AZACITIDINE
     Indication: Neoplasm malignant
     Dosage: 0.1 GRAM
     Route: 058
     Dates: start: 20240311, end: 20240313

REACTIONS (4)
  - Myelosuppression [Recovering/Resolving]
  - Hypophagia [Recovering/Resolving]
  - Nausea [Recovering/Resolving]
  - Vomiting [Recovering/Resolving]

NARRATIVE: CASE EVENT DATE: 20240327
